FAERS Safety Report 8060012-6 (Version None)
Quarter: 2012Q1

REPORT INFORMATION
  Report Type: 
  Country: None (occurrence: None)
  Receive Date: 20120120
  Receipt Date: 20120117
  Transmission Date: 20120608
  Serious: Yes (Life-Threatening, Hospitalization)
  Sender: FDA-Public Use
  Company Number: PHHO2011US021717

PATIENT
  Sex: Female
  Weight: 90.3 kg

DRUGS (8)
  1. EFFEXOR [Concomitant]
     Dosage: UNK
     Dates: start: 20110902
  2. KLONOPIN [Suspect]
     Indication: ANXIETY
     Dosage: WEEKLY
     Dates: start: 20110818
  3. EFFEXOR [Concomitant]
     Indication: DEPRESSION
     Dosage: 37.5 MG, QW
     Dates: start: 20110804
  4. METOPROLOL SUCCINATE EXTENDED RELEASE [Suspect]
  5. ILARIS [Suspect]
     Indication: CARDIOVASCULAR EVENT PROPHYLAXIS
     Dosage: DOUBLE BLINDED
     Dates: start: 20110623
  6. BLINDED NO TREATMENT RECEIVED [Suspect]
     Indication: CARDIOVASCULAR EVENT PROPHYLAXIS
     Dosage: DOUBLE BLINDED
     Dates: start: 20110623
  7. EFFEXOR [Concomitant]
     Dosage: UNK
     Dates: start: 20111027
  8. BLINDED PLACEBO [Suspect]
     Indication: CARDIOVASCULAR EVENT PROPHYLAXIS
     Dosage: DOUBLE BLINDED
     Dates: start: 20110623

REACTIONS (3)
  - SUICIDE ATTEMPT [None]
  - OVERDOSE [None]
  - CONCOMITANT DISEASE PROGRESSION [None]
